FAERS Safety Report 5392425-5 (Version None)
Quarter: 2007Q3

REPORT INFORMATION
  Report Type: 
  Country: None (occurrence: None)
  Receive Date: 20070720
  Receipt Date: 20070716
  Transmission Date: 20080115
  Serious: Yes (Death)
  Sender: FDA-Public Use
  Company Number: B0479759A

PATIENT
  Age: 2 Day
  Sex: Male

DRUGS (4)
  1. TRIZIVIR [Suspect]
     Indication: ANTIVIRAL PROPHYLAXIS
     Dosage: 1TAB TWICE PER DAY
     Dates: start: 20070413, end: 20070617
  2. ZIDOVUDINE [Suspect]
     Indication: ANTIVIRAL PROPHYLAXIS
     Dates: start: 20070616, end: 20070616
  3. ZIDOVUDINE [Suspect]
     Dosage: 4MGK TWICE PER DAY
     Route: 048
     Dates: start: 20070616, end: 20070616
  4. NEVIRAPINE [Suspect]
     Indication: ANTIVIRAL PROPHYLAXIS
     Dosage: 6MG SINGLE DOSE
     Route: 048
     Dates: start: 20070616, end: 20070616

REACTIONS (4)
  - PALLOR [None]
  - PNEUMONIA [None]
  - RESPIRATORY DISTRESS [None]
  - SEPSIS [None]
